FAERS Safety Report 7893363-6 (Version None)
Quarter: 2011Q4

REPORT INFORMATION
  Report Type: 
  Country: None (occurrence: None)
  Receive Date: 20111104
  Receipt Date: 20111101
  Transmission Date: 20120403
  Serious: Yes (Other)
  Sender: FDA-Public Use
  Company Number: BR-ROCHE-1008549

PATIENT
  Sex: Male
  Weight: 64 kg

DRUGS (1)
  1. ISOTRETINOIN [Suspect]
     Indication: ACNE
     Route: 048
     Dates: start: 20101001, end: 20110301

REACTIONS (2)
  - APPENDICITIS [None]
  - HOMOSEXUALITY [None]
